FAERS Safety Report 23230071 (Version 1)
Quarter: 2023Q4

REPORT INFORMATION
  Report Type: Spontaneous
  Country: US (occurrence: None)
  Receive Date: 20231123
  Receipt Date: 20231123
  Transmission Date: 20240110
  Serious: Yes (Other)
  Sender: FDA-Public Use
  Company Number: None

PATIENT
  Age: 94 Year
  Sex: Male

DRUGS (10)
  1. ELIGARD [Suspect]
     Active Substance: LEUPROLIDE ACETATE
     Indication: Prostate cancer
     Dosage: 30 MG SUBCUTANEOUS??INJECT 1 SYRINGE  UNDER THE SKIN (SUBCUTAENOUS INJECTION) EVERY 16 WEEKS ?
     Route: 058
     Dates: start: 20170406
  2. ALFUZOSIN [Concomitant]
     Active Substance: ALFUZOSIN
  3. ASPIRIN CHW [Concomitant]
  4. B COMPLEX [Concomitant]
  5. GLUCOSAMINE [Concomitant]
     Active Substance: GLUCOSAMINE
  6. LEVOTHYROXINE [Concomitant]
     Active Substance: LEVOTHYROXINE
  7. MULTIVITAMIN TAB MEN 50+ [Concomitant]
  8. HERBALS\SAW PALMETTO [Concomitant]
     Active Substance: HERBALS\SAW PALMETTO
  9. VALSARTAN [Concomitant]
     Active Substance: VALSARTAN
  10. VITAMIN D3 [Concomitant]
     Active Substance: CHOLECALCIFEROL

REACTIONS (1)
  - Cerebrovascular accident [None]

NARRATIVE: CASE EVENT DATE: 20230904
